FAERS Safety Report 4426397-4 (Version None)
Quarter: 2004Q3

REPORT INFORMATION
  Report Type: 
  Country: None (occurrence: None)
  Receive Date: 20040811
  Receipt Date: 20040729
  Transmission Date: 20050211
  Serious: Yes (Other)
  Sender: FDA-Public Use
  Company Number: 2004052061

PATIENT

DRUGS (1)
  1. CARDURA XL [Suspect]
     Indication: ILL-DEFINED DISORDER
     Dosage: 80 MG (1 IN 1D), ORAL
     Route: 048

REACTIONS (1)
  - CARDIAC FAILURE [None]
